FAERS Safety Report 9777139 (Version 1)
Quarter: 2013Q4

REPORT INFORMATION
  Report Type: Spontaneous
  Country: US (occurrence: US)
  Receive Date: 20131221
  Receipt Date: 20131221
  Transmission Date: 20140711
  Serious: No
  Sender: FDA-Public Use
  Company Number: US-B.I. PHARMACEUTICALS,INC./RIDGEFIELD-2013-BI-41680BP

PATIENT
  Sex: 0

DRUGS (1)
  1. PRADAXA [Suspect]
     Dates: start: 20110102

REACTIONS (1)
  - Dry mouth [Unknown]
